FAERS Safety Report 10278876 (Version 3)
Quarter: 2014Q3

REPORT INFORMATION
  Report Type: Report from Study
  Country: BR (occurrence: BR)
  Receive Date: 20140706
  Receipt Date: 20140815
  Transmission Date: 20150326
  Serious: Yes (Death, Hospitalization, Other)
  Sender: FDA-Public Use
  Company Number: PHHY2014BR082665

PATIENT
  Sex: Female

DRUGS (6)
  1. TOBI [Suspect]
     Active Substance: TOBRAMYCIN
     Indication: ANTIBIOTIC THERAPY
     Dosage: 1 DF, DAILY (AMPOULE)
  2. TOBI [Suspect]
     Active Substance: TOBRAMYCIN
     Indication: LUNG DISORDER
  3. VITAMIN B C COMPLEX [Concomitant]
     Dosage: UNK UKN, UNK
     Dates: end: 201406
  4. PULMOZYME [Suspect]
     Active Substance: DORNASE ALFA
     Indication: SECRETION DISCHARGE
     Dosage: 1 DF, DAILY
     Dates: end: 201406
  5. PANCREAS [Concomitant]
     Indication: NUTRITIONAL SUPPLEMENTATION
     Dosage: 3 DF, (2 CAPSULES ON LUNCH AND DINNER, 1 CAPSULE IN OTHER MEALS)
  6. AZITHROMYCIN [Concomitant]
     Active Substance: AZITHROMYCIN ANHYDROUS
     Indication: SECRETION DISCHARGE
     Dosage: UNK UKN, BID
     Dates: end: 201406

REACTIONS (8)
  - Concomitant disease aggravated [Unknown]
  - Asthenia [Fatal]
  - Drug administered to patient of inappropriate age [Unknown]
  - Drug dependence [Fatal]
  - Blood glucose abnormal [Recovering/Resolving]
  - Increased bronchial secretion [Unknown]
  - Fatigue [Fatal]
  - Respiratory disorder [Fatal]
